FAERS Safety Report 21335120 (Version 1)
Quarter: 2022Q3

REPORT INFORMATION
  Report Type: Spontaneous
  Country: US (occurrence: US)
  Receive Date: 20220914
  Receipt Date: 20220914
  Transmission Date: 20221026
  Serious: Yes (Death, Other)
  Sender: FDA-Public Use
  Company Number: US-BRISTOL-MYERS SQUIBB COMPANY-2022-104199

PATIENT
  Age: 55 Year
  Sex: Female

DRUGS (3)
  1. SPRYCEL [Suspect]
     Active Substance: DASATINIB
     Indication: Bone cancer
     Route: 048
     Dates: start: 202202, end: 20220817
  2. SPRYCEL [Suspect]
     Active Substance: DASATINIB
     Indication: Endocrine neoplasm
  3. SPRYCEL [Suspect]
     Active Substance: DASATINIB
     Indication: Bone neoplasm

REACTIONS (2)
  - Malignant neoplasm progression [Fatal]
  - Intentional product use issue [Unknown]

NARRATIVE: CASE EVENT DATE: 20220817
